FAERS Safety Report 9878151 (Version 2)
Quarter: 2014Q2

REPORT INFORMATION
  Report Type: Report from Study
  Country: US (occurrence: US)
  Receive Date: 20140206
  Receipt Date: 20140626
  Transmission Date: 20141212
  Serious: Yes (Death)
  Sender: FDA-Public Use
  Company Number: US-SA-2014SA009049

PATIENT
  Age: 86 Year
  Sex: Female
  Weight: 59.87 kg

DRUGS (16)
  1. CAMPATH [Suspect]
     Indication: CHRONIC LYMPHOCYTIC LEUKAEMIA
     Route: 058
     Dates: start: 20100726, end: 20130125
  2. GUAIFENESIN [Concomitant]
     Route: 048
     Dates: end: 20130606
  3. PRIMAXIN [Concomitant]
     Dates: end: 20130606
  4. LOPRESSOR [Concomitant]
     Route: 042
     Dates: end: 20130606
  5. BENZONATATE [Concomitant]
     Route: 048
     Dates: end: 20130606
  6. PACERONE [Concomitant]
     Route: 048
     Dates: end: 20130606
  7. ZOCOR [Concomitant]
     Dosage: AT BEDTIME
     Route: 048
     Dates: end: 20130606
  8. ZOVIRAX [Concomitant]
     Route: 048
     Dates: end: 20130606
  9. CARDIZEM [Concomitant]
     Route: 048
     Dates: end: 20130606
  10. ZOFRAN [Concomitant]
     Route: 042
     Dates: end: 20130606
  11. ZITHROMAX [Concomitant]
     Route: 042
     Dates: end: 20130606
  12. PEPCID [Concomitant]
     Route: 042
     Dates: end: 20130606
  13. LANOXIN [Concomitant]
     Route: 048
     Dates: end: 20130606
  14. SACCHAROMYCES BOULARDII [Concomitant]
     Route: 048
     Dates: end: 20130606
  15. SODIUM HYPOCHLORITE [Concomitant]
     Route: 061
     Dates: end: 20130606
  16. SYNTHROID [Concomitant]
     Route: 042
     Dates: end: 20130606

REACTIONS (1)
  - Acute respiratory failure [Fatal]
